FAERS Safety Report 8520437-9 (Version None)
Quarter: 2012Q3

REPORT INFORMATION
  Report Type: 
  Country: None (occurrence: None)
  Receive Date: 20120719
  Receipt Date: 20120717
  Transmission Date: 20120928
  Serious: Yes (Other)
  Sender: FDA-Public Use
  Company Number: ZA-BAYER-2012-071510

PATIENT
  Age: 38 Year
  Sex: Female

DRUGS (4)
  1. MIRENA [Suspect]
     Dosage: 20 MCG/24HR, CONT
     Route: 015
     Dates: start: 20120501
  2. MIRENA [Suspect]
     Indication: MENORRHAGIA
     Dosage: 20 MCG/24HR, CONT
     Route: 015
     Dates: start: 20050701
  3. LAMOTRIGINE [Concomitant]
     Indication: EPILEPSY
     Dosage: 50 MG, UNK
  4. TEGRETOL [Concomitant]
     Dosage: 400 MG, UNK

REACTIONS (1)
  - BREAST CANCER [None]
